FAERS Safety Report 4266801-8 (Version None)
Quarter: 2004Q1

REPORT INFORMATION
  Report Type: 
  Country: None (occurrence: None)
  Receive Date: 20040108
  Receipt Date: 20040105
  Transmission Date: 20041129
  Serious: Yes (Life-Threatening, Hospitalization)
  Sender: FDA-Public Use
  Company Number: GB-ROCHE-355226

PATIENT
  Age: 57 Year
  Sex: Female
  Weight: 100 kg

DRUGS (5)
  1. XENICAL [Suspect]
     Indication: OBESITY
     Route: 048
     Dates: start: 20030215, end: 20030915
  2. BECOTIDE [Concomitant]
     Route: 055
  3. SALBUTAMOL [Concomitant]
     Route: 055
  4. NIFEDIPINE [Concomitant]
     Route: 065
     Dates: start: 20031015
  5. BENDROFLUAZIDE [Concomitant]
     Route: 065
     Dates: start: 20031015

REACTIONS (3)
  - FEELING ABNORMAL [None]
  - HEPATIC FAILURE [None]
  - HEPATITIS CHOLESTATIC [None]
